FAERS Safety Report 14155070 (Version 1)
Quarter: 2017Q4

REPORT INFORMATION
  Report Type: Report from Study
  Country: None (occurrence: GB)
  Receive Date: 20171103
  Receipt Date: 20171103
  Transmission Date: 20180321
  Serious: Yes (Hospitalization)
  Sender: FDA-Public Use
  Company Number: GB-ABBVIE-17K-167-2120419-00

PATIENT
  Age: 58 Year
  Sex: Male

DRUGS (2)
  1. DUODOPA [Suspect]
     Active Substance: CARBIDOPA\LEVODOPA
     Route: 050
     Dates: end: 20171027
  2. DUODOPA [Suspect]
     Active Substance: CARBIDOPA\LEVODOPA
     Indication: PARKINSON^S DISEASE
     Dosage: 100ML CASSETTE, STOPPED AS NOT KNOWING IF THE PUMP WAS WORKING CORRECTLY.
     Route: 050
     Dates: end: 201709

REACTIONS (9)
  - Device dislocation [Unknown]
  - Anticipatory anxiety [Unknown]
  - Drug dose omission [Unknown]
  - Fall [Unknown]
  - Fall [Recovered/Resolved]
  - Drug ineffective [Unknown]
  - Product storage error [Unknown]
  - Joint injury [Unknown]
  - Somnolence [Unknown]

NARRATIVE: CASE EVENT DATE: 2017
